FAERS Safety Report 8168593-9 (Version None)
Quarter: 2012Q1

REPORT INFORMATION
  Report Type: 
  Country: None (occurrence: None)
  Receive Date: 20120227
  Receipt Date: 20120227
  Transmission Date: 20120608
  Serious: Yes (Hospitalization)
  Sender: FDA-Public Use
  Company Number: None

PATIENT
  Age: 86 Year
  Sex: Female
  Weight: 61.234 kg

DRUGS (1)
  1. NITROFURANTOIN [Suspect]
     Indication: URINARY TRACT INFECTION
     Dosage: 100.0 MG
     Route: 048
     Dates: start: 20120223, end: 20120224

REACTIONS (4)
  - HEADACHE [None]
  - PALPITATIONS [None]
  - DYSPNOEA [None]
  - BLOOD PRESSURE INCREASED [None]
